FAERS Safety Report 4309070-2 (Version None)
Quarter: 2004Q1

REPORT INFORMATION
  Report Type: 
  Country: None (occurrence: None)
  Receive Date: 20040227
  Receipt Date: 20040219
  Transmission Date: 20041129
  Serious: Yes (Hospitalization)
  Sender: FDA-Public Use
  Company Number: 2004200153ES

PATIENT
  Age: 54 Year
  Sex: Female
  Weight: 26.3 kg

DRUGS (1)
  1. DETRUSITOL [Suspect]
     Indication: URINARY INCONTINENCE
     Dosage: 2 MG, BID, ORAL
     Route: 048
     Dates: start: 20040201, end: 20040201

REACTIONS (4)
  - CRYSTAL URINE PRESENT [None]
  - HAEMATURIA [None]
  - NEPHROLITHIASIS [None]
  - RENAL COLIC [None]
